FAERS Safety Report 23743314 (Version 1)
Quarter: 2024Q2

REPORT INFORMATION
  Report Type: Spontaneous
  Country: FR (occurrence: FR)
  Receive Date: 20240415
  Receipt Date: 20240415
  Transmission Date: 20240716
  Serious: Yes (Other)
  Sender: FDA-Public Use
  Company Number: None

PATIENT
  Age: 54 Year
  Sex: Female
  Weight: 69 kg

DRUGS (2)
  1. CIPROFLOXACIN [Suspect]
     Active Substance: CIPROFLOXACIN
     Indication: Ear infection
     Dosage: 500 MG, BID
     Route: 048
     Dates: start: 20210916, end: 20211127
  2. OFLOXACIN [Suspect]
     Active Substance: OFLOXACIN
     Indication: Ear infection
     Dosage: PLUSIEURS TRAITEMENTS
     Route: 001
     Dates: start: 2022, end: 2023

REACTIONS (3)
  - Sleep disorder [Not Recovered/Not Resolved]
  - Arthralgia [Not Recovered/Not Resolved]
  - Rotator cuff syndrome [Not Recovered/Not Resolved]

NARRATIVE: CASE EVENT DATE: 20220101
